FAERS Safety Report 14198117 (Version 1)
Quarter: 2017Q4

REPORT INFORMATION
  Report Type: Spontaneous
  Country: US (occurrence: US)
  Receive Date: 20171116
  Receipt Date: 20171116
  Transmission Date: 20180321
  Serious: Yes (Hospitalization)
  Sender: FDA-Public Use
  Company Number: None

PATIENT
  Sex: Male
  Weight: 6.75 kg

DRUGS (2)
  1. HYDROCORTISONE. [Suspect]
     Active Substance: HYDROCORTISONE
     Indication: ECZEMA
     Dates: start: 20151116, end: 20151229
  2. TRIAMCINIOLONE [Suspect]
     Active Substance: TRIAMCINOLONE
     Indication: ECZEMA
     Dates: start: 20151116, end: 20151229

REACTIONS (10)
  - Secretion discharge [None]
  - Drug dose omission [None]
  - Steroid withdrawal syndrome [None]
  - Laceration [None]
  - Drug dependence [None]
  - Drug prescribing error [None]
  - Rash generalised [None]
  - Drug administered to patient of inappropriate age [None]
  - Eczema [None]
  - Blood immunoglobulin G decreased [None]

NARRATIVE: CASE EVENT DATE: 20151116
